FAERS Safety Report 19821052 (Version 3)
Quarter: 2021Q3

REPORT INFORMATION
  Report Type: Spontaneous
  Country: AR (occurrence: AR)
  Receive Date: 20210913
  Receipt Date: 20210930
  Transmission Date: 20211014
  Serious: Yes (Hospitalization, Other)
  Sender: FDA-Public Use
  Company Number: AR-SA-2021SA299929

PATIENT
  Sex: Female

DRUGS (2)
  1. TOUJEO [Suspect]
     Active Substance: INSULIN GLARGINE
     Dosage: 12 IU, QD (MORNING BEFORE BREAKFAST)
     Route: 065
  2. TOUJEO [Suspect]
     Active Substance: INSULIN GLARGINE
     Dosage: 22 IU, QD (MORNING BEFORE BREAKFAST)
     Route: 065
     Dates: start: 2018

REACTIONS (13)
  - Diabetic coma [Unknown]
  - Loss of consciousness [Unknown]
  - Musculoskeletal stiffness [Not Recovered/Not Resolved]
  - Hypoglycaemia [Unknown]
  - Intentional product use issue [Unknown]
  - Diabetic metabolic decompensation [Unknown]
  - Injection site mass [Unknown]
  - Syncope [Unknown]
  - Agitation [Unknown]
  - Dyspnoea [Not Recovered/Not Resolved]
  - Pain [Not Recovered/Not Resolved]
  - Injection site pain [Unknown]
  - Intentional dose omission [Unknown]

NARRATIVE: CASE EVENT DATE: 202108
